FAERS Safety Report 16976775 (Version 1)
Quarter: 2019Q4

REPORT INFORMATION
  Report Type: Spontaneous
  Country: US (occurrence: US)
  Receive Date: 20191030
  Receipt Date: 20191030
  Transmission Date: 20200122
  Serious: Yes (Other)
  Sender: FDA-Public Use
  Company Number: US-BAUSCH-BL-2019-059142

PATIENT
  Sex: Female
  Weight: 83.08 kg

DRUGS (3)
  1. COLAZAL [Suspect]
     Active Substance: BALSALAZIDE DISODIUM
     Indication: IRRITABLE BOWEL SYNDROME
     Dosage: STARTING A FEW MONTHS AGO
     Route: 048
     Dates: start: 2019, end: 201910
  2. COLAZAL [Suspect]
     Active Substance: BALSALAZIDE DISODIUM
     Indication: INFLAMMATORY BOWEL DISEASE
     Dosage: STARTED APPROXIMATELY 18-20 YEARS AGO AND STOPPED A FEW MONTHS AGO
     Route: 048
     Dates: end: 2019
  3. COLAZAL [Suspect]
     Active Substance: BALSALAZIDE DISODIUM
     Route: 048
     Dates: start: 20191023

REACTIONS (6)
  - Ear infection [Not Recovered/Not Resolved]
  - Uterine leiomyoma [Unknown]
  - Candida infection [Not Recovered/Not Resolved]
  - Diarrhoea [Not Recovered/Not Resolved]
  - Product availability issue [Unknown]
  - Intentional product use issue [Unknown]

NARRATIVE: CASE EVENT DATE: 2015
